FAERS Safety Report 6708693-0 (Version None)
Quarter: 2010Q2

REPORT INFORMATION
  Report Type: 
  Country: None (occurrence: None)
  Receive Date: 20100503
  Receipt Date: 20100428
  Transmission Date: 20101027
  Serious: Yes (Hospitalization)
  Sender: FDA-Public Use
  Company Number: US-MERCK-1004USA04549

PATIENT
  Age: 53 Year
  Sex: Female

DRUGS (4)
  1. HYZAAR [Suspect]
     Indication: BLOOD PRESSURE
     Route: 048
     Dates: start: 20050101
  2. VITAMIN D (UNSPECIFIED) [Concomitant]
     Route: 065
  3. XANAX [Concomitant]
     Route: 065
  4. TYLENOL-500 [Concomitant]
     Route: 065

REACTIONS (5)
  - DRY MOUTH [None]
  - FEELING ABNORMAL [None]
  - INTRACRANIAL ANEURYSM [None]
  - LETHARGY [None]
  - REPRODUCTIVE TRACT DISORDER [None]
